FAERS Safety Report 23973883 (Version 1)
Quarter: 2024Q2

REPORT INFORMATION
  Report Type: Spontaneous
  Country: CN (occurrence: CN)
  Receive Date: 20240613
  Receipt Date: 20240613
  Transmission Date: 20240716
  Serious: Yes (Death)
  Sender: FDA-Public Use
  Company Number: CN-Eisai-EC-2024-168038

PATIENT
  Age: 71 Year
  Sex: Male
  Weight: 75 kg

DRUGS (2)
  1. LENVATINIB [Suspect]
     Active Substance: LENVATINIB
     Indication: Hepatic cancer
     Route: 048
     Dates: start: 20240423, end: 20240425
  2. KEYTRUDA [Suspect]
     Active Substance: PEMBROLIZUMAB
     Indication: Hepatic cancer
     Dates: start: 20240423, end: 20240423

REACTIONS (4)
  - Hepatic failure [Fatal]
  - Cytokine storm [Fatal]
  - Product use issue [Fatal]
  - Infection [Unknown]

NARRATIVE: CASE EVENT DATE: 20240401
